FAERS Safety Report 5381258-1 (Version None)
Quarter: 2007Q3

REPORT INFORMATION
  Report Type: 
  Country: None (occurrence: None)
  Receive Date: 20070706
  Receipt Date: 20070626
  Transmission Date: 20080115
  Serious: Yes (Hospitalization, Other)
  Sender: FDA-Public Use
  Company Number: US-ABBOTT-07P-163-0372731-00

PATIENT
  Sex: Female
  Weight: 68.1 kg

DRUGS (13)
  1. OMNICEF [Suspect]
     Indication: LYME DISEASE
     Route: 048
     Dates: start: 20060801, end: 20060901
  2. MESALAZINE [Concomitant]
     Indication: DRUG USE FOR UNKNOWN INDICATION
  3. VALACYCLOVIR HCL [Concomitant]
     Indication: DRUG USE FOR UNKNOWN INDICATION
  4. TIZANIDINE HCL [Concomitant]
     Indication: DRUG USE FOR UNKNOWN INDICATION
  5. LEFLUNOMIDE [Concomitant]
     Indication: DRUG USE FOR UNKNOWN INDICATION
  6. ZOLPIDEM TARTRATE [Concomitant]
     Indication: DRUG USE FOR UNKNOWN INDICATION
  7. PANOCAPS [Concomitant]
     Indication: DRUG USE FOR UNKNOWN INDICATION
  8. MEPERIDINE HCL [Concomitant]
     Indication: DRUG USE FOR UNKNOWN INDICATION
  9. CLONIDINE [Concomitant]
     Indication: DRUG USE FOR UNKNOWN INDICATION
  10. TOPIRAMATE [Concomitant]
     Indication: DRUG USE FOR UNKNOWN INDICATION
  11. PANTOPRAZOLE SODIUM [Concomitant]
     Indication: DRUG USE FOR UNKNOWN INDICATION
  12. CETIRIZINE HYDROCHLORIDE [Concomitant]
     Indication: DRUG USE FOR UNKNOWN INDICATION
  13. FLUTICASONE PROPIONATE [Concomitant]
     Indication: DRUG USE FOR UNKNOWN INDICATION

REACTIONS (6)
  - ANXIETY [None]
  - DYSPNOEA [None]
  - FEAR [None]
  - MUSCULAR WEAKNESS [None]
  - NEUROPATHY [None]
  - PARANOIA [None]
